FAERS Safety Report 7280408-X (Version None)
Quarter: 2011Q1

REPORT INFORMATION
  Report Type: 
  Country: None (occurrence: None)
  Receive Date: 20110208
  Receipt Date: 20110107
  Transmission Date: 20110831
  Serious: No
  Sender: FDA-Public Use
  Company Number: US-B.I. PHARMACEUTICALS,INC./RIDGEFIELD-2011-BP-02187BP

PATIENT
  Sex: Female

DRUGS (6)
  1. PLAVIX [Concomitant]
  2. NORVASC [Concomitant]
     Indication: HYPERTENSION
  3. FOLIC ACID [Concomitant]
  4. LIPITOR [Concomitant]
     Indication: BLOOD CHOLESTEROL INCREASED
  5. ZANTAC 150 [Suspect]
     Indication: ABDOMINAL PAIN UPPER
     Dosage: 300 MG
     Route: 048
     Dates: start: 20101201
  6. INSULIN [Concomitant]
     Indication: DIABETES MELLITUS

REACTIONS (1)
  - DRUG INEFFECTIVE [None]
